FAERS Safety Report 15959950 (Version 1)
Quarter: 2019Q1

REPORT INFORMATION
  Report Type: Spontaneous
  Country: US (occurrence: US)
  Receive Date: 20190214
  Receipt Date: 20190214
  Transmission Date: 20190417
  Serious: No
  Sender: FDA-Public Use
  Company Number: US-ROCHE-2096284

PATIENT
  Sex: Male

DRUGS (9)
  1. NIFEDIPINE. [Concomitant]
     Active Substance: NIFEDIPINE
  2. ERIVEDGE [Suspect]
     Active Substance: VISMODEGIB
     Indication: BONE CANCER
  3. HYDRALAZINE [Concomitant]
     Active Substance: HYDRALAZINE HYDROCHLORIDE
  4. HYDROCHLOROTHIAZIDE. [Concomitant]
     Active Substance: HYDROCHLOROTHIAZIDE
  5. ERIVEDGE [Suspect]
     Active Substance: VISMODEGIB
     Indication: BRONCHIAL CARCINOMA
     Route: 048
     Dates: start: 20170824
  6. CLINDAMYCIN. [Concomitant]
     Active Substance: CLINDAMYCIN
  7. FAMOTIDINE. [Concomitant]
     Active Substance: FAMOTIDINE
  8. SPIRONOLACTONE. [Concomitant]
     Active Substance: SPIRONOLACTONE
  9. AMOXICILLIN. [Concomitant]
     Active Substance: AMOXICILLIN

REACTIONS (1)
  - Skin hypertrophy [Unknown]
